FAERS Safety Report 23377443 (Version 1)
Quarter: 2024Q1

REPORT INFORMATION
  Report Type: Spontaneous
  Country: PL (occurrence: PL)
  Receive Date: 20240108
  Receipt Date: 20240108
  Transmission Date: 20240410
  Serious: Yes (Other)
  Sender: FDA-Public Use
  Company Number: None

PATIENT
  Age: 72 Year
  Sex: Male
  Weight: 108 kg

DRUGS (4)
  1. FLUOROURACIL [Suspect]
     Active Substance: FLUOROURACIL
     Indication: Colon cancer
     Dosage: 3680 (DOSE UNIT UNKNOWN), FLUOROURACIL 5000
     Dates: start: 20180409
  2. OXALIPLATIN [Suspect]
     Active Substance: OXALIPLATIN
     Indication: Colon cancer
     Dosage: 110 (DOSE UNIT UNKNOWN), 0.1G/20ML (LOT: PX04129), 0.05G/10ML (LOT: X15626)
     Dates: start: 20180409
  3. LEVOLEUCOVORIN [Concomitant]
     Active Substance: LEVOLEUCOVORIN
     Indication: Colon cancer
     Dosage: 200 MG/4 ML, 460 (DOSE UNIT UNKNOWN)
     Dates: start: 20180409
  4. AVASTIN [Concomitant]
     Active Substance: BEVACIZUMAB
     Indication: Colon cancer
     Dosage: 1080 (DOSE UNIT UNKNOWN), AVASTIN 0.4G (LOT: B8027H19), AVASTIN 0.1G LOT: B8027H19(20))
     Dates: start: 20180409

REACTIONS (2)
  - Neutropenia [Recovering/Resolving]
  - Asthenia [Recovering/Resolving]

NARRATIVE: CASE EVENT DATE: 20190506
